FAERS Safety Report 6470361-0 (Version None)
Quarter: 2009Q4

REPORT INFORMATION
  Report Type: 
  Country: None (occurrence: None)
  Receive Date: 20091202
  Receipt Date: 20091202
  Transmission Date: 20100525
  Serious: Yes (Hospitalization)
  Sender: FDA-Public Use
  Company Number: None

PATIENT
  Age: 87 Year
  Sex: Male
  Weight: 86.6 kg

DRUGS (1)
  1. INSULIN [Suspect]
     Indication: TYPE 1 DIABETES MELLITUS
     Dosage: 50 UNITS HS PO
     Route: 048
     Dates: start: 20090121, end: 20091129

REACTIONS (2)
  - HYPOGLYCAEMIA [None]
  - SYNCOPE [None]
